FAERS Safety Report 5939237-9 (Version None)
Quarter: 2008Q4

REPORT INFORMATION
  Report Type: 
  Country: None (occurrence: None)
  Receive Date: 20081103
  Receipt Date: 20081027
  Transmission Date: 20090506
  Serious: Yes (Hospitalization)
  Sender: FDA-Public Use
  Company Number: US-AMGEN-QUU315617

PATIENT
  Sex: Male

DRUGS (2)
  1. ENBREL [Suspect]
     Indication: RHEUMATOID ARTHRITIS
     Route: 058
     Dates: start: 20040707
  2. METHOTREXATE [Concomitant]
     Route: 048

REACTIONS (6)
  - BACK PAIN [None]
  - EXOSTOSIS [None]
  - HYPOAESTHESIA [None]
  - NEPHROLITHIASIS [None]
  - NERVE COMPRESSION [None]
  - RHEUMATOID ARTHRITIS [None]
